FAERS Safety Report 7596914-4 (Version None)
Quarter: 2011Q3

REPORT INFORMATION
  Report Type: 
  Country: None (occurrence: None)
  Receive Date: 20110708
  Receipt Date: 20110705
  Transmission Date: 20111222
  Serious: Yes (Death)
  Sender: FDA-Public Use
  Company Number: US-PFIZER INC-2011149914

PATIENT
  Sex: Female

DRUGS (4)
  1. NEXIUM [Concomitant]
     Dosage: UNK
  2. LYRICA [Suspect]
     Dosage: UNK
  3. PROVENTIL [Concomitant]
     Dosage: UNK
  4. ZYVOX [Concomitant]
     Dosage: UNK

REACTIONS (1)
  - DEATH [None]
